FAERS Safety Report 7261442-2 (Version None)
Quarter: 2011Q1

REPORT INFORMATION
  Report Type: 
  Country: None (occurrence: None)
  Receive Date: 20110130
  Receipt Date: 20100930
  Transmission Date: 20110831
  Serious: No
  Sender: FDA-Public Use
  Company Number: US-ABBOTT-10P-163-0674913-00

PATIENT
  Age: 30 Year
  Sex: Female

DRUGS (9)
  1. BENADRYL [Concomitant]
     Indication: PROPHYLAXIS
  2. VICODIN [Concomitant]
     Indication: PAIN
  3. BENADRYL [Concomitant]
     Indication: ADVERSE REACTION
  4. HUMIRA [Suspect]
     Indication: CROHN'S DISEASE
     Dates: start: 20090901
  5. VITAMIN B-12 [Concomitant]
     Indication: HYPOVITAMINOSIS
  6. SEASONIQUE [Concomitant]
     Indication: CONTRACEPTION
     Dosage: DAILY
  7. XANAX [Concomitant]
     Indication: ANXIETY
  8. TYLENOL-500 [Concomitant]
     Indication: PROPHYLAXIS
  9. TYLENOL-500 [Concomitant]
     Indication: ADVERSE REACTION

REACTIONS (7)
  - INJECTION SITE REACTION [None]
  - CYST [None]
  - INJECTION SITE ERYTHEMA [None]
  - INJECTION SITE PRURITUS [None]
  - SUBCUTANEOUS ABSCESS [None]
  - CELLULITIS [None]
  - INJECTION SITE SWELLING [None]
